FAERS Safety Report 18617713 (Version 39)
Quarter: 2025Q3

REPORT INFORMATION
  Report Type: Report from Study
  Country: US (occurrence: US)
  Receive Date: 20201215
  Receipt Date: 20250811
  Transmission Date: 20251021
  Serious: Yes (Hospitalization, Other)
  Sender: TAKEDA
  Company Number: US-TAKEDA-2020TUS056488

PATIENT
  Age: 62 Year
  Sex: Female
  Weight: 52 kg

DRUGS (32)
  1. HUMAN IMMUNOGLOBULIN G [Suspect]
     Active Substance: HUMAN IMMUNOGLOBULIN G
     Indication: Immune system disorder
     Dosage: 6 GRAM, 1/WEEK
  2. HUMAN IMMUNOGLOBULIN G [Suspect]
     Active Substance: HUMAN IMMUNOGLOBULIN G
     Indication: Immunodeficiency
  3. HUMAN IMMUNOGLOBULIN G [Suspect]
     Active Substance: HUMAN IMMUNOGLOBULIN G
     Indication: Infection
  4. HUMAN IMMUNOGLOBULIN G [Suspect]
     Active Substance: HUMAN IMMUNOGLOBULIN G
     Indication: Hypergammaglobulinaemia
  5. DIPHENHYDRAMINE [Concomitant]
     Active Substance: DIPHENHYDRAMINE
  6. ZINC [Concomitant]
     Active Substance: ZINC
  7. VITAMIN K [Concomitant]
     Active Substance: PHYTONADIONE
  8. EPINEPHRINE [Concomitant]
     Active Substance: EPINEPHRINE
  9. HERBALS\TURMERIC [Concomitant]
     Active Substance: HERBALS\TURMERIC
  10. SPIRIVA RESPIMAT [Concomitant]
     Active Substance: TIOTROPIUM BROMIDE
  11. BIOTIN [Concomitant]
     Active Substance: BIOTIN
  12. ACETAMINOPHEN [Concomitant]
     Active Substance: ACETAMINOPHEN
  13. ZOFRAN [Concomitant]
     Active Substance: ONDANSETRON HYDROCHLORIDE
  14. BROVANA [Concomitant]
     Active Substance: ARFORMOTEROL TARTRATE
  15. CEPHALEXIN [Concomitant]
     Active Substance: CEPHALEXIN
  16. AZELASTINE HYDROCHLORIDE [Concomitant]
     Active Substance: AZELASTINE HYDROCHLORIDE
  17. OXYGEN [Concomitant]
     Active Substance: OXYGEN
  18. CALADRYL [Concomitant]
     Active Substance: CALAMINE\DIPHENHYDRAMINE HYDROCHLORIDE\FERRIC OXIDE RED\PRAMOXINE HYDROCHLORIDE\ZINC OXIDE
  19. CRESTOR [Concomitant]
     Active Substance: ROSUVASTATIN CALCIUM
  20. VITAMIN A [Concomitant]
     Active Substance: VITAMIN A
  21. VITAMIN C [Concomitant]
     Active Substance: ASCORBIC ACID
  22. MAGNESIUM [Concomitant]
     Active Substance: MAGNESIUM
  23. DESONIDE [Concomitant]
     Active Substance: DESONIDE
  24. PLAVIX [Concomitant]
     Active Substance: CLOPIDOGREL BISULFATE
  25. IVERMECTIN [Concomitant]
     Active Substance: IVERMECTIN
  26. Lmx [Concomitant]
  27. CVS coenzyme q 10 [Concomitant]
  28. VITAMIN D2 [Concomitant]
     Active Substance: ERGOCALCIFEROL
  29. NM-6603 [Concomitant]
     Active Substance: NM-6603
  30. VITAMIN D [Concomitant]
     Active Substance: VITAMIN D NOS
  31. FLUBLOK [Concomitant]
     Active Substance: INFLUENZA VIRUS VACCINE
  32. DIPHENHYDRAMINE HYDROCHLORIDE [Concomitant]
     Active Substance: DIPHENHYDRAMINE HYDROCHLORIDE

REACTIONS (51)
  - Mast cell activation syndrome [Unknown]
  - Epstein-Barr virus infection reactivation [Unknown]
  - Metal poisoning [Unknown]
  - Colitis [Unknown]
  - Appendicitis [Unknown]
  - Loss of consciousness [Unknown]
  - Lip swelling [Unknown]
  - Pharyngeal hypoaesthesia [Unknown]
  - Sensitive skin [Unknown]
  - COVID-19 [Unknown]
  - Illness [Unknown]
  - Hypoaesthesia oral [Unknown]
  - Candida infection [Unknown]
  - Arthropod bite [Unknown]
  - Infection [Unknown]
  - Gout [Unknown]
  - Infection parasitic [Not Recovered/Not Resolved]
  - Urinary tract infection [Unknown]
  - Application site exfoliation [Unknown]
  - Gastroenteritis viral [Recovered/Resolved]
  - Herpes zoster [Unknown]
  - Ear infection [Unknown]
  - Localised infection [Unknown]
  - Weight decreased [Unknown]
  - Eczema [Unknown]
  - Cardiac disorder [Unknown]
  - Ear pain [Unknown]
  - Neoplasm of appendix [Unknown]
  - Hypoaesthesia [Unknown]
  - Sinusitis [Recovering/Resolving]
  - Infusion site haemorrhage [Unknown]
  - Injection site rash [Unknown]
  - Influenza [Recovered/Resolved]
  - Abdominal discomfort [Unknown]
  - Infusion site bruising [Unknown]
  - Rash [Unknown]
  - Lymphadenopathy [Unknown]
  - Dermatitis [Unknown]
  - Pain in extremity [Unknown]
  - Influenza like illness [Unknown]
  - Chills [Unknown]
  - Back pain [Unknown]
  - Infusion site pain [Unknown]
  - Diarrhoea [Unknown]
  - Dizziness [Unknown]
  - Headache [Unknown]
  - Nausea [Unknown]
  - Pruritus [Unknown]
  - Intentional product use issue [Unknown]
  - Paraesthesia oral [Recovered/Resolved]
  - Food allergy [Unknown]

NARRATIVE: CASE EVENT DATE: 20201203
